FAERS Safety Report 9049163 (Version 1)
Quarter: 2013Q1

REPORT INFORMATION
  Report Type: Report from Study
  Country: US (occurrence: US)
  Receive Date: 20130205
  Receipt Date: 20130205
  Transmission Date: 20140127
  Serious: Yes (Death, Hospitalization)
  Sender: FDA-Public Use
  Company Number: US-ROCHE-1186974

PATIENT
  Age: 66 Year
  Sex: Male
  Weight: 114 kg

DRUGS (6)
  1. BEVACIZUMAB [Suspect]
     Indication: EPSTEIN-BARR VIRUS TEST POSITIVE
     Dosage: LAST ADMINISTERED DOSE 04/DEC/2012
     Route: 042
     Dates: start: 20121009
  2. BEVACIZUMAB [Suspect]
     Indication: NEOPLASM
  3. CISPLATIN [Suspect]
     Indication: EPSTEIN-BARR VIRUS TEST POSITIVE
     Dosage: LAST ADMINISTERED DOSE 04/DEC/2012
     Route: 042
     Dates: start: 20121009
  4. CISPLATIN [Suspect]
     Indication: NEOPLASM
  5. DOCETAXEL [Suspect]
     Indication: EPSTEIN-BARR VIRUS TEST POSITIVE
     Dosage: LAST ADMINISTERED DOSE 04/DEC/2012
     Route: 042
     Dates: start: 20121009
  6. DOCETAXEL [Suspect]
     Indication: NEOPLASM

REACTIONS (1)
  - Lung infection [Fatal]
